APPROVED DRUG PRODUCT: NUZYRA
Active Ingredient: OMADACYCLINE TOSYLATE
Strength: EQ 100MG BASE/VIAL
Dosage Form/Route: POWDER;INTRAVENOUS
Application: N209817 | Product #001
Applicant: PARATEK PHARMACEUTICALS INC
Approved: Oct 2, 2018 | RLD: Yes | RS: Yes | Type: RX

PATENTS:
Patent 10124014 | Expires: Mar 5, 2029
Patent 10383884 | Expires: Oct 31, 2037
Patent 10835542 | Expires: Oct 31, 2037
Patent 9724358 | Expires: Mar 5, 2029
Patent 9265740 | Expires: Mar 5, 2029

EXCLUSIVITY:
Code: NCE | Date: Oct 2, 2023
Code: GAIN | Date: Oct 2, 2028